FAERS Safety Report 15208054 (Version 1)
Quarter: 2018Q3

REPORT INFORMATION
  Report Type: Spontaneous
  Country: TN (occurrence: TN)
  Receive Date: 20180727
  Receipt Date: 20180727
  Transmission Date: 20181010
  Serious: Yes (Other)
  Sender: FDA-Public Use
  Company Number: TN-NOVOPROD-612277

PATIENT
  Age: 69 Year
  Sex: Female
  Weight: 99 kg

DRUGS (6)
  1. INSULIN GLARGINE [Concomitant]
     Active Substance: INSULIN GLARGINE
     Dosage: UNK
  2. LIPOTEN [Concomitant]
  3. VICTOZA [Suspect]
     Active Substance: LIRAGLUTIDE
     Indication: TYPE 2 DIABETES MELLITUS
     Dosage: 1.2 MG, QD
     Route: 058
     Dates: start: 201403, end: 201601
  4. VICTOZA [Suspect]
     Active Substance: LIRAGLUTIDE
     Indication: OBESITY
  5. CO APROVEL [Concomitant]
     Active Substance: HYDROCHLOROTHIAZIDE\IRBESARTAN
  6. TAHOR [Concomitant]
     Active Substance: ATORVASTATIN CALCIUM

REACTIONS (1)
  - Benign neoplasm of thyroid gland [Not Recovered/Not Resolved]
